FAERS Safety Report 13713866 (Version 1)
Quarter: 2017Q3

REPORT INFORMATION
  Report Type: Report from Study
  Country: US (occurrence: US)
  Receive Date: 20170704
  Receipt Date: 20170704
  Transmission Date: 20171127
  Serious: No
  Sender: FDA-Public Use
  Company Number: US-AMGEN-USASL2017097445

PATIENT
  Age: 50 Year
  Sex: Female

DRUGS (1)
  1. ENBREL [Suspect]
     Active Substance: ETANERCEPT
     Indication: PRODUCT USED FOR UNKNOWN INDICATION
     Dosage: 50 MG, UNK
     Route: 065
     Dates: start: 201706

REACTIONS (6)
  - Injection site rash [Unknown]
  - Injection site haemorrhage [Unknown]
  - Injection site bruising [Not Recovered/Not Resolved]
  - Injection site papule [Unknown]
  - Injection site erythema [Unknown]
  - Limb injury [Unknown]

NARRATIVE: CASE EVENT DATE: 20170620
